FAERS Safety Report 8198769 (Version 5)
Quarter: 2015Q3

REPORT INFORMATION
  Report Type: Spontaneous
  Country: DE (occurrence: DE)
  Receive Date: 20111025
  Receipt Date: 20150807
  Transmission Date: 20151125
  Serious: Yes (Life-Threatening, Hospitalization)
  Sender: FDA-Public Use
  Company Number: DE-BAYER-2011-099344

PATIENT
  Age: 49 Year
  Sex: Female
  Weight: 90 kg

DRUGS (2)
  1. MIRENA [Suspect]
     Active Substance: LEVONORGESTREL
     Indication: CONTRACEPTION
     Dosage: 20 MCG/24HR, CONT
     Route: 015
     Dates: start: 200609, end: 200811
  2. MIRENA [Suspect]
     Active Substance: LEVONORGESTREL
     Indication: CONTRACEPTION
     Dosage: 20 MCG/24HR, CONT
     Route: 015
     Dates: start: 200007, end: 200609

REACTIONS (3)
  - Breast cancer [Recovered/Resolved]
  - Device use error [None]
  - Fibroadenoma of breast [None]

NARRATIVE: CASE EVENT DATE: 20100830
